FAERS Safety Report 8185755 (Version 3)
Quarter: 2012Q4

REPORT INFORMATION
  Report Type: Report from Study
  Country: JP (occurrence: JP)
  Receive Date: 20111018
  Receipt Date: 20121129
  Transmission Date: 20130627
  Serious: Yes (Hospitalization)
  Sender: FDA-Public Use
  Company Number: PHHY2011JP90093

PATIENT
  Age: 57 Year
  Sex: Male

DRUGS (11)
  1. AMN107 [Suspect]
     Indication: CHRONIC MYELOID LEUKAEMIA
     Dosage: 800 mg, daily
     Route: 048
     Dates: start: 20090730
  2. MUCOSTA [Concomitant]
     Indication: PROPHYLAXIS
     Dosage: 300 mg, daily
     Route: 048
  3. CRAVIT [Concomitant]
     Dosage: 5 ml, daily
     Route: 047
  4. BETNEVATE N [Concomitant]
     Dosage: 5 g, daily
     Route: 061
  5. AMLODIN [Concomitant]
     Dosage: 5 mg, daily
     Route: 048
  6. OMEPRAL [Concomitant]
     Dosage: 10 mg, daily
     Route: 048
  7. VESICARE [Concomitant]
     Dosage: 5 mg, daily
     Route: 048
  8. NIPOLAZIN [Concomitant]
     Indication: PROPHYLAXIS
     Dosage: 12 mg, daily
     Route: 048
     Dates: start: 20090811
  9. NIPOLAZIN [Concomitant]
     Dosage: 6 mg, daily
     Route: 048
     Dates: start: 20090811
  10. XYZAL [Concomitant]
     Indication: PROPHYLAXIS
     Dosage: 5 mg, UNK
     Route: 048
     Dates: start: 20120419
  11. MYONAL [Concomitant]
     Indication: PROPHYLAXIS
     Dosage: 100 mg, UNK
     Route: 048
     Dates: start: 20110922

REACTIONS (7)
  - Acute myocardial infarction [Recovering/Resolving]
  - Nausea [Recovering/Resolving]
  - Vomiting [Recovering/Resolving]
  - Chest discomfort [Recovering/Resolving]
  - Electrocardiogram ST segment abnormal [Recovering/Resolving]
  - Heart valve stenosis [Recovering/Resolving]
  - Hypophosphataemia [Recovered/Resolved]
